FAERS Safety Report 5191008-X (Version None)
Quarter: 2006Q4

REPORT INFORMATION
  Report Type: 
  Country: None (occurrence: None)
  Receive Date: 20061214
  Receipt Date: 20061211
  Transmission Date: 20070319
  Serious: Yes (Hospitalization, Other)
  Sender: FDA-Public Use
  Company Number: HQWYE814311DEC06

PATIENT
  Age: 78 Year
  Sex: Female

DRUGS (3)
  1. AMIODARONE                       (AMIODARONE, UNSPEC) [Suspect]
     Dosage: UNK
  2. CLOPIDOGREL [Concomitant]
  3. ASPIRIN [Concomitant]

REACTIONS (2)
  - BRONCHITIS [None]
  - HYPERTHYROIDISM [None]
